FAERS Safety Report 24547805 (Version 3)
Quarter: 2024Q4

REPORT INFORMATION
  Report Type: Report from Study
  Country: US (occurrence: US)
  Receive Date: 20241025
  Receipt Date: 20241127
  Transmission Date: 20250115
  Serious: Yes (Hospitalization)
  Sender: ROCHE
  Company Number: US-ROCHE-10000114594

PATIENT
  Age: 53 Year
  Sex: Female

DRUGS (1)
  1. RITUXIMAB [Suspect]
     Active Substance: RITUXIMAB
     Indication: Myelin oligodendrocyte glycoprotein antibody-associated disease
     Route: 042
     Dates: start: 2022

REACTIONS (20)
  - Pharyngitis streptococcal [Unknown]
  - Pneumonia pseudomonal [Unknown]
  - Cardiac failure congestive [Not Recovered/Not Resolved]
  - Urinary incontinence [Unknown]
  - Pollakiuria [Unknown]
  - Urge incontinence [Unknown]
  - Lumbosacral radiculopathy [Unknown]
  - Neuralgia [Unknown]
  - Obstructive sleep apnoea syndrome [Unknown]
  - Pneumonia [Not Recovered/Not Resolved]
  - Off label use [Unknown]
  - Tremor [Recovered/Resolved]
  - Irritability [Recovered/Resolved]
  - Rash [Recovered/Resolved]
  - Anaemia [Unknown]
  - Thyroid mass [Not Recovered/Not Resolved]
  - Upper-airway cough syndrome [Not Recovered/Not Resolved]
  - Fluid retention [Unknown]
  - Muscle spasms [Unknown]
  - Nausea [Unknown]

NARRATIVE: CASE EVENT DATE: 20240604
